FAERS Safety Report 8049155-0 (Version None)
Quarter: 2012Q1

REPORT INFORMATION
  Report Type: 
  Country: None (occurrence: None)
  Receive Date: 20120117
  Receipt Date: 20111214
  Transmission Date: 20120608
  Serious: No
  Sender: FDA-Public Use
  Company Number: US-JNJFOC-20110207494

PATIENT

DRUGS (2)
  1. IRESSA [Suspect]
     Indication: NEOPLASM MALIGNANT
     Route: 065
  2. DOXORUBICIN HCL [Suspect]
     Indication: NEOPLASM MALIGNANT
     Route: 042

REACTIONS (1)
  - METABOLIC DISORDER [None]
